FAERS Safety Report 9137442 (Version 1)
Quarter: 2013Q1

REPORT INFORMATION
  Report Type: Spontaneous
  Country: US (occurrence: US)
  Receive Date: 20130219
  Receipt Date: 20130219
  Transmission Date: 20140127
  Serious: No
  Sender: FDA-Public Use
  Company Number: US-BRISTOL-MYERS SQUIBB COMPANY-16825499

PATIENT
  Age: 62 Year
  Sex: Female
  Weight: 78.91 kg

DRUGS (3)
  1. ABATACEPT SUBQ INJECTION 125MG/ML [Suspect]
     Indication: RHEUMATOID ARTHRITIS
     Dosage: PRES#4SYRINGES:425656769.1#425656769?EXPDTOF1SYRNGE:NO2013,NDC#1SYRNGE:0003218831,LSTINF:27JL12
     Route: 058
  2. PREDNISONE [Concomitant]
  3. CELEBREX [Concomitant]

REACTIONS (2)
  - Drug dose omission [Unknown]
  - Incorrect storage of drug [Unknown]
